FAERS Safety Report 8926815 (Version 1)
Quarter: 2012Q4

REPORT INFORMATION
  Report Type: 
  Country: US (occurrence: US)
  Receive Date: 20121127
  Receipt Date: 20121127
  Transmission Date: 20130627
  Serious: No
  Sender: FDA-Public Use
  Company Number: US-009507513-1211USA008696

PATIENT
  Age: 29 None
  Sex: Female
  Weight: 60.77 kg

DRUGS (2)
  1. DESOGEN [Suspect]
     Indication: CONTRACEPTION
     Dosage: UNK
     Route: 048
     Dates: start: 20121017
  2. PLAN B [Suspect]
     Indication: CONTRACEPTION
     Dosage: 1.5 Microgram, qd
     Route: 048
     Dates: start: 20121016, end: 20121016

REACTIONS (3)
  - Vaginal haemorrhage [Recovered/Resolved]
  - Vaginal discharge [Recovered/Resolved]
  - Menstruation delayed [Not Recovered/Not Resolved]
